FAERS Safety Report 19125479 (Version 9)
Quarter: 2021Q3

REPORT INFORMATION
  Report Type: Report from Study
  Country: BR (occurrence: BR)
  Receive Date: 20210412
  Receipt Date: 20210922
  Transmission Date: 20211014
  Serious: Yes (Other)
  Sender: FDA-Public Use
  Company Number: NVSC2021BR077406

PATIENT
  Age: 63 Year
  Sex: Female
  Weight: 93 kg

DRUGS (7)
  1. KISQALI [Suspect]
     Active Substance: RIBOCICLIB
     Dosage: 3 DF, QD
     Route: 048
     Dates: start: 20210326
  2. LETROZOLE. [Suspect]
     Active Substance: LETROZOLE
     Indication: BREAST CANCER METASTATIC
     Dosage: 1 DF, QD
     Route: 048
     Dates: start: 20210326
  3. KISQALI [Suspect]
     Active Substance: RIBOCICLIB
     Indication: NEOPLASM MALIGNANT
     Dosage: 3 DF, QD
     Route: 048
     Dates: start: 20210326
  4. LETROZOLE. [Suspect]
     Active Substance: LETROZOLE
     Indication: HORMONE THERAPY
     Dosage: UNK (CONTINUOUS FOR 28 DAYS)
     Route: 065
  5. KISQALI [Suspect]
     Active Substance: RIBOCICLIB
     Dosage: UNK (3X A DAY, 7 PAUSE DAYS)
     Route: 065
     Dates: start: 20210327
  6. KISQALI [Suspect]
     Active Substance: RIBOCICLIB
     Dosage: 600 MG, QD
     Route: 065
  7. KISQALI [Suspect]
     Active Substance: RIBOCICLIB
     Indication: METASTASES TO BREAST
     Dosage: 200 MG
     Route: 065
     Dates: start: 202007

REACTIONS (29)
  - Immunodeficiency [Not Recovered/Not Resolved]
  - Diarrhoea [Recovered/Resolved]
  - Rhinorrhoea [Recovering/Resolving]
  - Muscle spasms [Not Recovered/Not Resolved]
  - Arthropathy [Unknown]
  - Asthenia [Not Recovered/Not Resolved]
  - Haemorrhoids [Recovered/Resolved]
  - Feeling abnormal [Unknown]
  - Abdominal pain upper [Recovered/Resolved]
  - Metastases to lung [Unknown]
  - Nasopharyngitis [Recovering/Resolving]
  - Blood disorder [Unknown]
  - Insomnia [Recovered/Resolved]
  - Nausea [Recovered/Resolved]
  - Alopecia [Not Recovered/Not Resolved]
  - Eating disorder [Unknown]
  - Oropharyngeal pain [Recovering/Resolving]
  - Ageusia [Unknown]
  - Nausea [Recovered/Resolved]
  - Malaise [Recovered/Resolved]
  - Haemorrhoidal haemorrhage [Recovered/Resolved]
  - Cough [Recovering/Resolving]
  - Nasal congestion [Recovering/Resolving]
  - Epistaxis [Recovering/Resolving]
  - Taste disorder [Recovered/Resolved]
  - Decreased appetite [Recovered/Resolved]
  - Breast mass [Unknown]
  - Abdominal discomfort [Unknown]
  - Gingival bleeding [Recovered/Resolved]

NARRATIVE: CASE EVENT DATE: 202102
